FAERS Safety Report 10022671 (Version 2)
Quarter: 2014Q2

REPORT INFORMATION
  Report Type: Spontaneous
  Country: US (occurrence: US)
  Receive Date: 20140319
  Receipt Date: 20140402
  Transmission Date: 20141212
  Serious: No
  Sender: FDA-Public Use
  Company Number: US-PFIZER INC-2014078249

PATIENT
  Age: 49 Year
  Sex: Female

DRUGS (2)
  1. ATORVASTATIN CALCIUM [Suspect]
     Dosage: 20 MG, UNK
     Dates: start: 20120610
  2. ATORVASTATIN CALCIUM [Suspect]
     Dosage: 20 MG, UNK
     Dates: start: 20120601, end: 20140101

REACTIONS (4)
  - Drug ineffective [Unknown]
  - Pruritus [Unknown]
  - Insomnia [Unknown]
  - Rash [Unknown]
